FAERS Safety Report 8618741-9 (Version None)
Quarter: 2012Q3

REPORT INFORMATION
  Report Type: 
  Country: None (occurrence: None)
  Receive Date: 20120824
  Receipt Date: 20120816
  Transmission Date: 20120928
  Serious: Yes (Other)
  Sender: FDA-Public Use
  Company Number: JP-009507513-1208JPN007915

PATIENT

DRUGS (1)
  1. PEG-INTRON [Suspect]
     Dosage: DOSAGE IS UNCERTAIN DURING A DAY
     Route: 058

REACTIONS (1)
  - CEREBRAL INFARCTION [None]
